FAERS Safety Report 9839574 (Version 2)
Quarter: 2014Q1

REPORT INFORMATION
  Report Type: Report from Study
  Country: FR (occurrence: FR)
  Receive Date: 20140124
  Receipt Date: 20140128
  Transmission Date: 20141002
  Serious: Yes (Hospitalization)
  Sender: FDA-Public Use
  Company Number: FR-ROCHE-1336572

PATIENT
  Sex: Male

DRUGS (14)
  1. RITUXIMAB [Suspect]
     Indication: RHEUMATOID ARTHRITIS
     Route: 042
     Dates: start: 20070829
  2. RITUXIMAB [Suspect]
     Route: 042
     Dates: start: 20070912
  3. RITUXIMAB [Suspect]
     Route: 042
     Dates: start: 20081113
  4. RITUXIMAB [Suspect]
     Route: 042
     Dates: start: 20081126
  5. RITUXIMAB [Suspect]
     Route: 042
     Dates: start: 20100118
  6. RITUXIMAB [Suspect]
     Route: 042
     Dates: start: 20100201
  7. RITUXIMAB [Suspect]
     Route: 042
     Dates: start: 20110223
  8. RITUXIMAB [Suspect]
     Route: 042
     Dates: start: 20110309
  9. METHOTREXATE [Concomitant]
     Route: 065
  10. METHOTREXATE [Concomitant]
     Route: 065
  11. METHOTREXATE [Concomitant]
     Route: 065
  12. CORTANCYL [Concomitant]
     Route: 065
  13. CORTANCYL [Concomitant]
     Route: 065
  14. CORTANCYL [Concomitant]
     Route: 065

REACTIONS (2)
  - Lipoma [Recovered/Resolved]
  - Dyspnoea [Not Recovered/Not Resolved]
